FAERS Safety Report 14239590 (Version 5)
Quarter: 2018Q1

REPORT INFORMATION
  Report Type: Spontaneous
  Country: US (occurrence: US)
  Receive Date: 20171130
  Receipt Date: 20180326
  Transmission Date: 20180508
  Serious: No
  Sender: FDA-Public Use
  Company Number: US-GLAXOSMITHKLINE-US2017182134

PATIENT
  Sex: Female

DRUGS (5)
  1. PROTONIX (OMEPRAZOLE) [Concomitant]
     Active Substance: OMEPRAZOLE
  2. BREO ELLIPTA [Suspect]
     Active Substance: FLUTICASONE FUROATE\VILANTEROL TRIFENATATE
     Indication: CHRONIC OBSTRUCTIVE PULMONARY DISEASE
     Dosage: 1 PUFF(S), QD
     Route: 055
     Dates: start: 201706
  3. PREDNISONE. [Concomitant]
     Active Substance: PREDNISONE
  4. AMLODIPINE [Concomitant]
     Active Substance: AMLODIPINE BESYLATE
  5. XANAX [Concomitant]
     Active Substance: ALPRAZOLAM

REACTIONS (4)
  - Vomiting [Recovered/Resolved]
  - Product quality issue [Unknown]
  - Nausea [Not Recovered/Not Resolved]
  - Asthenia [Not Recovered/Not Resolved]
